FAERS Safety Report 26107275 (Version 1)
Quarter: 2025Q4

REPORT INFORMATION
  Report Type: Spontaneous
  Country: US (occurrence: None)
  Receive Date: 20251127
  Receipt Date: 20251127
  Transmission Date: 20260118
  Serious: No
  Sender: FDA-CTU
  Company Number: None

PATIENT
  Age: 31 Year
  Sex: Female
  Weight: 93.6 kg

DRUGS (12)
  1. CIMZIA [Suspect]
     Active Substance: CERTOLIZUMAB PEGOL
     Indication: Rheumatoid arthritis
     Dosage: 2 INJECTION(D) EVERY 2 WEEKS SUBCUTANEOUS
     Route: 058
     Dates: start: 20251126
  2. DEVICE [Concomitant]
     Active Substance: DEVICE
  3. LEVOTHYROXINE [Concomitant]
     Active Substance: LEVOTHYROXINE
  4. sulfasalazine 1500mg BID [Concomitant]
  5. hydroxychloroquin 200mg BID [Concomitant]
  6. Celebrex 100mg Q12H PRN [Concomitant]
  7. pantoprazole 40mg every other day [Concomitant]
  8. Sumitriptan 100mg PRN [Concomitant]
  9. CIMZIA starter kit (400mg q 2 weeks x3) then 200mg q2 weeks [Concomitant]
  10. loratadine 10mg daily PRN [Concomitant]
  11. prenatal multivitamin [Concomitant]
  12. Magnesium 100mg HS [Concomitant]

REACTIONS (2)
  - Rash macular [None]
  - Injection site reaction [None]

NARRATIVE: CASE EVENT DATE: 20251127
